FAERS Safety Report 6269170-7 (Version None)
Quarter: 2009Q3

REPORT INFORMATION
  Report Type: 
  Country: None (occurrence: None)
  Receive Date: 20090715
  Receipt Date: 20090707
  Transmission Date: 20100115
  Serious: Yes (Other)
  Sender: FDA-Public Use
  Company Number: US-JNJFOC-20090701490

PATIENT
  Age: 48 Year
  Sex: Female
  Weight: 106.14 kg

DRUGS (13)
  1. EXTRA STRENGTH TYLENOL [Suspect]
     Route: 048
  2. EXTRA STRENGTH TYLENOL [Suspect]
     Indication: BACK PAIN
     Dosage: 500 MG-1000 MG ONCE A DAY, AT LEAST TWICE A WEEK
     Route: 048
  3. TYLENOL W/ CODEINE NO. 3 [Suspect]
     Indication: PAIN
  4. PRONESTYL [Interacting]
     Indication: ARRHYTHMIA
  5. AMIODARONE HCL [Interacting]
     Indication: ARRHYTHMIA
  6. METOPROLOL TARTRATE [Interacting]
     Indication: BLOOD PRESSURE
  7. BENICAR [Interacting]
     Indication: BLOOD PRESSURE
  8. PREDNISONE TAB [Interacting]
     Indication: STEROID THERAPY
  9. WARFARIN SODIUM [Interacting]
  10. WARFARIN SODIUM [Interacting]
     Indication: ANTICOAGULANT THERAPY
  11. BACTRIM [Interacting]
     Indication: ANTIBIOTIC THERAPY
  12. FOSAMAX [Interacting]
     Indication: BONE DISORDER
  13. VITAMIN D [Concomitant]
     Indication: BONE DISORDER

REACTIONS (5)
  - CARDIAC FAILURE CONGESTIVE [None]
  - DRUG ADMINISTRATION ERROR [None]
  - DRUG INTERACTION [None]
  - HEPATIC CONGESTION [None]
  - HEPATIC ENZYME INCREASED [None]
